FAERS Safety Report 6312780-9 (Version None)
Quarter: 2009Q3

REPORT INFORMATION
  Report Type: 
  Country: None (occurrence: None)
  Receive Date: 20090817
  Receipt Date: 20090817
  Transmission Date: 20100115
  Serious: Yes (Life-Threatening, Hospitalization)
  Sender: FDA-Public Use
  Company Number: None

PATIENT
  Age: 35 Year
  Sex: Male
  Weight: 86.818 kg

DRUGS (1)
  1. RISPERDAL CONSTA [Suspect]
     Indication: SCHIZOPHRENIA, PARANOID TYPE
     Dosage: 50MG Q2WK IM
     Route: 030
     Dates: start: 20090717

REACTIONS (4)
  - ABSCESS [None]
  - CELLULITIS [None]
  - RENAL FAILURE ACUTE [None]
  - SEPSIS [None]
